FAERS Safety Report 9572738 (Version 1)
Quarter: 2013Q4

REPORT INFORMATION
  Report Type: Spontaneous
  Country: DE (occurrence: DE)
  Receive Date: 20131001
  Receipt Date: 20131001
  Transmission Date: 20140711
  Serious: Yes (Other)
  Sender: FDA-Public Use
  Company Number: DE-WATSON-2013-17335

PATIENT
  Age: 60 Year
  Sex: Female
  Weight: 73 kg

DRUGS (3)
  1. RAMIPRIL (UNKNOWN) [Suspect]
     Indication: HYPERTENSION
     Dosage: 2.5 MG, DAILY
     Route: 048
     Dates: start: 20130717, end: 20130719
  2. BISOPROLOL COMP [Concomitant]
     Indication: HYPERTENSION
     Dosage: 10/25 MG, UNK
     Route: 048
  3. COLESTYRAMIN [Concomitant]
     Indication: SHORT-BOWEL SYNDROME
     Dosage: 8 MG, DAILY
     Route: 048
     Dates: start: 2011

REACTIONS (2)
  - Apathy [Recovered/Resolved]
  - Depression [Recovered/Resolved]
